FAERS Safety Report 7737449-5 (Version None)
Quarter: 2011Q3

REPORT INFORMATION
  Report Type: 
  Country: None (occurrence: None)
  Receive Date: 20110908
  Receipt Date: 20110826
  Transmission Date: 20111222
  Serious: Yes (Death, Hospitalization)
  Sender: FDA-Public Use
  Company Number: US-GLAXOSMITHKLINE-A0899767A

PATIENT
  Age: 60 Year
  Sex: Female

DRUGS (4)
  1. AVANDIA [Suspect]
     Indication: DIABETES MELLITUS
     Route: 048
     Dates: start: 20000202, end: 20020130
  2. ACCUPRIL [Concomitant]
  3. GLUCOTROL XL [Concomitant]
  4. INSULIN [Concomitant]

REACTIONS (7)
  - CARDIAC ARREST [None]
  - MYOCARDIAL INFARCTION [None]
  - CARDIAC FAILURE CONGESTIVE [None]
  - CARDIO-RESPIRATORY ARREST [None]
  - CEREBROVASCULAR ACCIDENT [None]
  - HEART INJURY [None]
  - ACUTE MYOCARDIAL INFARCTION [None]
